FAERS Safety Report 5969140-X (Version None)
Quarter: 2008Q4

REPORT INFORMATION
  Report Type: 
  Country: None (occurrence: None)
  Receive Date: 20081126
  Receipt Date: 20081117
  Transmission Date: 20090506
  Serious: Yes (Other)
  Sender: FDA-Public Use
  Company Number: US-WATSON-2008-06785

PATIENT
  Sex: Female

DRUGS (2)
  1. TRELSTAR DEPOT [Suspect]
     Indication: HORMONE SUPPRESSION THERAPY
     Dosage: 3.75 MG, UNK
     Route: 030
     Dates: start: 20070323, end: 20081016
  2. TAMOXIFEN [Suspect]
     Indication: HORMONE SUPPRESSION THERAPY
     Dosage: 20 MG, UNK
     Route: 048
     Dates: start: 20070321, end: 20081103

REACTIONS (1)
  - VISION BLURRED [None]
